FAERS Safety Report 15708803 (Version 1)
Quarter: 2018Q4

REPORT INFORMATION
  Report Type: Spontaneous
  Country: US (occurrence: US)
  Receive Date: 20181211
  Receipt Date: 20181211
  Transmission Date: 20190205
  Serious: No
  Sender: FDA-Public Use
  Company Number: US-TEVA-2018-US-983574

PATIENT
  Sex: Male

DRUGS (2)
  1. BUDESONIDE INHALATION SUSPENSION [Suspect]
     Active Substance: BUDESONIDE
     Indication: NASAL POLYPS
  2. BUDESONIDE INHALATION SUSPENSION [Suspect]
     Active Substance: BUDESONIDE
     Indication: HYPERSENSITIVITY
     Dosage: DOSE STRENGTH: 0.5 MG/2 ML
     Route: 065
     Dates: start: 2016

REACTIONS (1)
  - Nasal dryness [Unknown]
